FAERS Safety Report 7342757-6 (Version None)
Quarter: 2011Q1

REPORT INFORMATION
  Report Type: 
  Country: None (occurrence: None)
  Receive Date: 20110310
  Receipt Date: 20110304
  Transmission Date: 20110831
  Serious: Yes (Hospitalization, Other)
  Sender: FDA-Public Use
  Company Number: GR-BRISTOL-MYERS SQUIBB COMPANY-15588320

PATIENT
  Age: 72 Year
  Sex: Female

DRUGS (3)
  1. PREZOLON [Concomitant]
     Dosage: CORTICOSTEROIDS
     Route: 048
  2. ARAVA [Suspect]
     Route: 048
  3. ORENCIA [Suspect]
     Indication: RHEUMATOID ARTHRITIS
     Dosage: THERAPY DATES : 1,5 YEARS
     Route: 042
     Dates: start: 20090101, end: 20101101

REACTIONS (1)
  - HEPATITIS B [None]
